FAERS Safety Report 24864078 (Version 2)
Quarter: 2025Q1

REPORT INFORMATION
  Report Type: Spontaneous
  Country: US (occurrence: US)
  Receive Date: 20250120
  Receipt Date: 20250222
  Transmission Date: 20250408
  Serious: No
  Sender: SANOFI AVENTIS
  Company Number: US-SA-2025SA016887

PATIENT
  Sex: Female

DRUGS (5)
  1. DUPIXENT [Suspect]
     Active Substance: DUPILUMAB
     Indication: Dermatitis atopic
     Dosage: 300 MG, QOW
     Route: 058
     Dates: end: 20250109
  2. CALCIUM\VITAMIN D [Concomitant]
     Active Substance: CALCIUM\VITAMIN D
  3. VITAMINS [Concomitant]
     Active Substance: VITAMINS
  4. RAMIPRIL [Concomitant]
     Active Substance: RAMIPRIL
  5. VITAMIN D [Concomitant]
     Active Substance: VITAMIN D NOS

REACTIONS (6)
  - Gastrointestinal disorder [Unknown]
  - Vomiting [Unknown]
  - Foreign body sensation in eyes [Unknown]
  - Nausea [Unknown]
  - Dry eye [Unknown]
  - Arthralgia [Unknown]
